FAERS Safety Report 17272634 (Version 3)
Quarter: 2021Q3

REPORT INFORMATION
  Report Type: Spontaneous
  Country: US (occurrence: US)
  Receive Date: 20200115
  Receipt Date: 20210906
  Transmission Date: 20211014
  Serious: Yes (Hospitalization, Other)
  Sender: FDA-Public Use
  Company Number: US-PFIZER INC-2020017287

PATIENT
  Age: 73 Year
  Sex: Female

DRUGS (1)
  1. XELJANZ XR [Suspect]
     Active Substance: TOFACITINIB CITRATE
     Dosage: 11 MG, DAILY
     Route: 048

REACTIONS (5)
  - Dupuytren^s contracture [Unknown]
  - Urinary tract infection [Unknown]
  - Cellulitis [Recovered/Resolved]
  - Cardiac failure congestive [Unknown]
  - Gastric disorder [Unknown]

NARRATIVE: CASE EVENT DATE: 2021
